FAERS Safety Report 6892673-9 (Version None)
Quarter: 2010Q3

REPORT INFORMATION
  Report Type: 
  Country: None (occurrence: None)
  Receive Date: 20100731
  Receipt Date: 20080808
  Transmission Date: 20110219
  Serious: Yes (Other)
  Sender: FDA-Public Use
  Company Number: US-PFIZER INC-2007068609

PATIENT
  Sex: Male

DRUGS (9)
  1. NEURONTIN [Suspect]
     Indication: PAIN
  2. AMITRIPTYLINE HYDROCHLORIDE [Suspect]
  3. OXYCODONE HCL [Suspect]
  4. ALCOHOL [Suspect]
  5. EFFEXOR [Concomitant]
     Indication: DEPRESSION
  6. VISTARIL [Concomitant]
  7. ZANAFLEX [Concomitant]
     Indication: MUSCLE RELAXANT THERAPY
  8. VIAGRA [Concomitant]
  9. LORTAB [Concomitant]

REACTIONS (2)
  - DRUG INEFFECTIVE FOR UNAPPROVED INDICATION [None]
  - SUICIDE ATTEMPT [None]
